FAERS Safety Report 26071767 (Version 2)
Quarter: 2025Q4

REPORT INFORMATION
  Report Type: Spontaneous
  Country: US (occurrence: US)
  Receive Date: 20251120
  Receipt Date: 20251202
  Transmission Date: 20260117
  Serious: Yes (Death, Other)
  Sender: MYLAN
  Company Number: US-MYLANLABS-2025M1098689

PATIENT
  Sex: Male

DRUGS (8)
  1. LEVOTHYROXINE SODIUM [Suspect]
     Active Substance: LEVOTHYROXINE SODIUM
     Indication: Hypothyroidism
     Dosage: 100 MICROGRAM
     Route: 065
  2. LEVOTHYROXINE SODIUM [Suspect]
     Active Substance: LEVOTHYROXINE SODIUM
     Dosage: 100 MICROGRAM
  3. LEVOTHYROXINE SODIUM [Suspect]
     Active Substance: LEVOTHYROXINE SODIUM
     Dosage: 100 MICROGRAM
  4. LEVOTHYROXINE SODIUM [Suspect]
     Active Substance: LEVOTHYROXINE SODIUM
     Dosage: 100 MICROGRAM
     Route: 065
  5. LEVOTHYROXINE SODIUM [Suspect]
     Active Substance: LEVOTHYROXINE SODIUM
     Dosage: 100 MICROGRAM, AM (DAILY IN THE MORNING)
     Route: 065
  6. LEVOTHYROXINE SODIUM [Suspect]
     Active Substance: LEVOTHYROXINE SODIUM
     Dosage: 100 MICROGRAM, AM (DAILY IN THE MORNING)
  7. LEVOTHYROXINE SODIUM [Suspect]
     Active Substance: LEVOTHYROXINE SODIUM
     Dosage: 100 MICROGRAM, AM (DAILY IN THE MORNING)
  8. LEVOTHYROXINE SODIUM [Suspect]
     Active Substance: LEVOTHYROXINE SODIUM
     Dosage: 100 MICROGRAM, AM (DAILY IN THE MORNING)
     Route: 065

REACTIONS (10)
  - Death [Fatal]
  - Atrial fibrillation [Unknown]
  - Arrhythmia [Unknown]
  - Cardiac failure congestive [Unknown]
  - Fluid retention [Unknown]
  - Sleep disorder [Unknown]
  - Respiration abnormal [Unknown]
  - Recalled product administered [Unknown]
  - Drug ineffective [Unknown]
  - Recalled product [Unknown]

NARRATIVE: CASE EVENT DATE: 20240101
